FAERS Safety Report 9354910 (Version 3)
Quarter: 2013Q3

REPORT INFORMATION
  Report Type: Spontaneous
  Country: US (occurrence: US)
  Receive Date: 20130619
  Receipt Date: 20130816
  Transmission Date: 20140515
  Serious: Yes (Hospitalization, Other)
  Sender: FDA-Public Use
  Company Number: US-BIOGENIDEC-2013BI052774

PATIENT
  Age: 43 Year
  Sex: Male

DRUGS (5)
  1. TYSABRI [Suspect]
     Indication: MULTIPLE SCLEROSIS
     Route: 042
     Dates: start: 20100719, end: 20100922
  2. TYSABRI [Suspect]
     Indication: MULTIPLE SCLEROSIS
     Route: 042
     Dates: start: 20130529
  3. BACLOFEN [Concomitant]
     Route: 048
  4. LORTAB [Concomitant]
     Route: 048
  5. ADDERALL [Concomitant]
     Route: 048

REACTIONS (7)
  - Hyponatraemia [Recovered/Resolved]
  - Fatigue [Not Recovered/Not Resolved]
  - Urinary tract infection [Recovered/Resolved]
  - Convulsion [Recovered/Resolved]
  - Insomnia [Unknown]
  - Restlessness [Unknown]
  - Muscle spasticity [Not Recovered/Not Resolved]
